FAERS Safety Report 12012088 (Version 1)
Quarter: 2016Q1

REPORT INFORMATION
  Report Type: Report from Study
  Country: US (occurrence: US)
  Receive Date: 20160205
  Receipt Date: 20160205
  Transmission Date: 20160526
  Serious: No
  Sender: FDA-Public Use
  Company Number: US-ABBVIE-15K-163-1451131-00

PATIENT
  Age: 34 Year
  Sex: Female
  Weight: 65.83 kg

DRUGS (3)
  1. PROZAC [Concomitant]
     Active Substance: FLUOXETINE HYDROCHLORIDE
     Indication: DEPRESSION
  2. HUMIRA [Suspect]
     Active Substance: ADALIMUMAB
     Indication: CROHN^S DISEASE
     Route: 058
     Dates: start: 201410
  3. TRAZODONE [Concomitant]
     Active Substance: TRAZODONE HYDROCHLORIDE
     Indication: INSOMNIA

REACTIONS (2)
  - Injection site pain [Recovered/Resolved]
  - Injection site discomfort [Recovered/Resolved]

NARRATIVE: CASE EVENT DATE: 201410
